FAERS Safety Report 7250619-8 (Version None)
Quarter: 2011Q1

REPORT INFORMATION
  Report Type: 
  Country: None (occurrence: None)
  Receive Date: 20110128
  Receipt Date: 20110119
  Transmission Date: 20110831
  Serious: Yes (Death)
  Sender: FDA-Public Use
  Company Number: US-SHIONOGI USA, INC-2011000007

PATIENT

DRUGS (3)
  1. NITROLINGUAL PUMPSPRAY [Suspect]
  2. PLACEBO [Suspect]
     Indication: THROMBOSIS PROPHYLAXIS
  3. APIXABAN [Suspect]
     Indication: THROMBOSIS PROPHYLAXIS

REACTIONS (1)
  - CARDIAC ARREST [None]
